FAERS Safety Report 6089080-8 (Version None)
Quarter: 2009Q1

REPORT INFORMATION
  Report Type: 
  Country: None (occurrence: None)
  Receive Date: 20090224
  Receipt Date: 20090218
  Transmission Date: 20090719
  Serious: No
  Sender: FDA-Public Use
  Company Number: US-JNJFOC-20090204971

PATIENT
  Sex: Male
  Weight: 102.06 kg

DRUGS (6)
  1. DURAGESIC-100 [Suspect]
     Indication: BACK PAIN
     Route: 062
  2. BENICAR [Concomitant]
     Indication: HYPERTENSION
     Route: 048
  3. AMLODIPINE [Concomitant]
     Indication: HYPERTENSION
     Route: 048
  4. SYMBICORT [Concomitant]
     Indication: ASTHMA
     Dosage: 2 PUFFS PER DAY
     Route: 055
  5. PROVENTIL [Concomitant]
     Indication: ASTHMA
     Dosage: 2 PUFFS PER DAY
     Route: 055
  6. NOVOLOG [Concomitant]
     Indication: DIABETES MELLITUS
     Dosage: 70 UNITS AS NEEDED
     Route: 042

REACTIONS (2)
  - INCORRECT DRUG ADMINISTRATION DURATION [None]
  - WRONG TECHNIQUE IN DRUG USAGE PROCESS [None]
